FAERS Safety Report 4707030-0 (Version None)
Quarter: 2005Q3

REPORT INFORMATION
  Report Type: 
  Country: None (occurrence: None)
  Receive Date: 20050706
  Receipt Date: 20050624
  Transmission Date: 20060218
  Serious: Yes (Hospitalization)
  Sender: FDA-Public Use
  Company Number: PHBS2005DK09288

PATIENT
  Age: 55 Year
  Sex: Female

DRUGS (1)
  1. DESERIL [Suspect]
     Indication: MIGRAINE
     Dosage: 6 MG, QD
     Route: 048
     Dates: start: 20050110, end: 20050513

REACTIONS (2)
  - CARDIAC FAILURE [None]
  - PLEURAL EFFUSION [None]
